FAERS Safety Report 24672965 (Version 1)
Quarter: 2024Q4

REPORT INFORMATION
  Report Type: Spontaneous
  Country: US (occurrence: US)
  Receive Date: 20241128
  Receipt Date: 20241128
  Transmission Date: 20250114
  Serious: No
  Sender: JIANGSU HENGRUI MEDICINE CO., LTD.
  Company Number: US-Jiangsu Hengrui Medicine Co., Ltd.-2166134

PATIENT
  Age: 60 Year
  Sex: Female

DRUGS (1)
  1. GADOBUTROL [Suspect]
     Active Substance: GADOBUTROL
     Indication: Magnetic resonance imaging joint
     Dates: start: 20241029, end: 20241029

REACTIONS (3)
  - Nausea [Recovered/Resolved]
  - Throat irritation [Recovered/Resolved]
  - Sneezing [Recovered/Resolved]

NARRATIVE: CASE EVENT DATE: 20241029
